FAERS Safety Report 6374745-0 (Version None)
Quarter: 2009Q3

REPORT INFORMATION
  Report Type: 
  Country: None (occurrence: None)
  Receive Date: 20090924
  Receipt Date: 20090916
  Transmission Date: 20100115
  Serious: Yes (Other)
  Sender: FDA-Public Use
  Company Number: PHHO2009GB11451

PATIENT
  Sex: Female

DRUGS (2)
  1. CERTICAN [Suspect]
     Indication: NEUROENDOCRINE TUMOUR
     Dosage: OPEN LABEL
     Route: 048
     Dates: start: 20090728, end: 20090908
  2. CERTICAN [Suspect]
     Dosage: OPEN LABEL
     Route: 048
     Dates: start: 20090909

REACTIONS (3)
  - BLOOD ALKALINE PHOSPHATASE INCREASED [None]
  - BLOOD CREATININE INCREASED [None]
  - BLOOD UREA INCREASED [None]
